FAERS Safety Report 8820603 (Version 1)
Quarter: 2012Q4

REPORT INFORMATION
  Report Type: 
  Country: US (occurrence: US)
  Receive Date: 20121002
  Receipt Date: 20121002
  Transmission Date: 20130627
  Serious: Yes (Hospitalization)
  Sender: FDA-Public Use
  Company Number: US-B.I. PHARMACEUTICALS,INC./RIDGEFIELD-2012-BP-23453BP

PATIENT
  Age: 55 None
  Sex: Male

DRUGS (12)
  1. PRADAXA [Suspect]
     Indication: INTRACARDIAC THROMBUS
     Dosage: 300 mg
     Route: 048
     Dates: start: 20120726, end: 201209
  2. ASPIRIN [Concomitant]
     Dosage: 162 mg
     Route: 048
  3. TEKTURNA [Concomitant]
     Indication: HYPERTENSION
     Dosage: 150 mg
     Route: 048
  4. DIOVAN [Concomitant]
     Indication: HYPERTENSION
     Dosage: 320 mg
     Route: 048
  5. COENZYME Q10 [Concomitant]
     Indication: PROPHYLAXIS
     Dosage: 200 mg
     Route: 048
  6. HYDROCHLOROTHIAZIDE [Concomitant]
     Indication: OEDEMA
     Dosage: 50 mg
     Route: 048
  7. NIACIN [Concomitant]
     Dosage: 500 mg
     Route: 048
  8. PRAVASTATIN [Concomitant]
     Indication: HYPERLIPIDAEMIA
     Dosage: 80 mg
     Route: 048
  9. PACERONE [Concomitant]
     Indication: ARRHYTHMIA
     Dosage: 200 mg
     Route: 048
  10. NITROMIST [Concomitant]
     Indication: CHEST PAIN
     Route: 060
  11. FISH OIL [Concomitant]
     Indication: HYPERLIPIDAEMIA
     Dosage: 3000 mg
     Route: 048
  12. BYSTOLIC [Concomitant]
     Indication: HYPERTENSION
     Dosage: 10 mg
     Route: 048

REACTIONS (3)
  - Haemorrhage intracranial [Recovered/Resolved]
  - Back pain [Not Recovered/Not Resolved]
  - Hypertension [Not Recovered/Not Resolved]
